FAERS Safety Report 19603617 (Version 4)
Quarter: 2021Q4

REPORT INFORMATION
  Report Type: Report from Study
  Country: US (occurrence: US)
  Receive Date: 20210723
  Receipt Date: 20211018
  Transmission Date: 20220303
  Serious: Yes (Hospitalization, Other)
  Sender: FDA-Public Use
  Company Number: US-BRISTOL-MYERS SQUIBB COMPANY-BMS-2021-069598

PATIENT
  Age: 80 Year
  Sex: Male

DRUGS (12)
  1. NIVOLUMAB [Suspect]
     Active Substance: NIVOLUMAB
     Indication: Prostate cancer
     Dosage: 240 MILLIGRAM, Q2WK FOR 53DOSES
     Route: 042
     Dates: start: 20171226
  2. NIVOLUMAB [Suspect]
     Active Substance: NIVOLUMAB
     Dosage: UNK, Q4WK
     Route: 042
     Dates: end: 20210706
  3. RILIMOGENE GALVACIREPVEC [Suspect]
     Active Substance: RILIMOGENE GALVACIREPVEC
     Indication: Prostate cancer
     Dosage: 2 X 10E9 SINGLE DOSE
     Route: 058
     Dates: start: 20171212
  4. RILIMOGENE GLAFOLIVEC [Suspect]
     Active Substance: RILIMOGENE GLAFOLIVEC
     Indication: Prostate cancer
     Dosage: 1 X 10E9 EVERY 4WEEKS
     Route: 058
     Dates: start: 20171226, end: 20210706
  5. APIXABAN [Concomitant]
     Active Substance: APIXABAN
     Indication: Product used for unknown indication
     Route: 065
  6. OMEPRAZOLE [Concomitant]
     Active Substance: OMEPRAZOLE
     Indication: Product used for unknown indication
     Route: 065
  7. CALCIUM\CHOLECALCIFEROL [Concomitant]
     Active Substance: CALCIUM\CHOLECALCIFEROL
     Indication: Product used for unknown indication
     Route: 065
  8. LISINOPRIL [Concomitant]
     Active Substance: LISINOPRIL
     Indication: Product used for unknown indication
     Route: 065
  9. SITAGLIPTIN [Concomitant]
     Active Substance: SITAGLIPTIN
     Indication: Product used for unknown indication
     Route: 065
  10. ROSUVASTATIN [Concomitant]
     Active Substance: ROSUVASTATIN
     Indication: Product used for unknown indication
     Route: 065
  11. KETOCONAZOLE [Concomitant]
     Active Substance: KETOCONAZOLE
     Indication: Product used for unknown indication
     Route: 061
  12. GLIPIZIDE [Concomitant]
     Active Substance: GLIPIZIDE
     Indication: Product used for unknown indication
     Route: 065

REACTIONS (6)
  - Vestibular disorder [Unknown]
  - Vomiting [Unknown]
  - Diarrhoea [Unknown]
  - Non-cardiac chest pain [Unknown]
  - Duodenal obstruction [Unknown]
  - Small intestinal obstruction [Unknown]

NARRATIVE: CASE EVENT DATE: 20210713
